FAERS Safety Report 24831625 (Version 4)
Quarter: 2025Q1

REPORT INFORMATION
  Report Type: Report from Study
  Country: US (occurrence: US)
  Receive Date: 20250110
  Receipt Date: 20250227
  Transmission Date: 20250408
  Serious: Yes (Hospitalization, Other)
  Sender: ALNYLAM PHARMACEUTICALS
  Company Number: US-ALNYLAM PHARMACEUTICALS, INC.-ALN-2025-000116

PATIENT

DRUGS (1)
  1. AMVUTTRA [Suspect]
     Active Substance: VUTRISIRAN
     Indication: Hereditary neuropathic amyloidosis
     Route: 065
     Dates: start: 20230429, end: 20230429

REACTIONS (6)
  - COVID-19 [Unknown]
  - Neuropathy peripheral [Unknown]
  - Balance disorder [Unknown]
  - Intentional dose omission [Unknown]
  - Tremor [Unknown]
  - Illness [Unknown]

NARRATIVE: CASE EVENT DATE: 20240719
